FAERS Safety Report 22631015 (Version 1)
Quarter: 2023Q2

REPORT INFORMATION
  Report Type: Spontaneous
  Country: NO (occurrence: NO)
  Receive Date: 20230622
  Receipt Date: 20230622
  Transmission Date: 20230721
  Serious: Yes (Other)
  Sender: FDA-Public Use
  Company Number: None

PATIENT
  Age: 32 Year
  Sex: Female
  Weight: 78 kg

DRUGS (2)
  1. AIMOVIG [Suspect]
     Active Substance: ERENUMAB-AOOE
     Indication: Migraine
     Dosage: 70 MG, QMO (N02CD01 - ERENUMAB)
     Route: 058
     Dates: start: 20230213, end: 20230602
  2. ZOMIG [Concomitant]
     Active Substance: ZOLMITRIPTAN
     Indication: Migraine
     Dosage: 1 DOSAGE FORM, PRN (ONE SPRAY AS REQUIRED) (OPPL 5 MG/DOSE) (N02CC03 - ZOLMITRIPTAN - ONGOING TREATM
     Route: 065

REACTIONS (7)
  - Haematochezia [Unknown]
  - Epistaxis [Unknown]
  - Joint stiffness [Unknown]
  - Gingival bleeding [Unknown]
  - Vaginal haemorrhage [Unknown]
  - Abdominal pain [Unknown]
  - Pain [Unknown]
